FAERS Safety Report 6938229-0 (Version None)
Quarter: 2010Q3

REPORT INFORMATION
  Report Type: 
  Country: None (occurrence: None)
  Receive Date: 20100817
  Receipt Date: 20100805
  Transmission Date: 20110219
  Serious: Yes (Death, Hospitalization, Other)
  Sender: FDA-Public Use
  Company Number: 2010AP001537

PATIENT
  Age: 9 Year
  Sex: Male

DRUGS (9)
  1. PREDNISONE [Suspect]
     Indication: IMMUNOSUPPRESSANT DRUG THERAPY
     Dosage: 0.3 MG/KG; QD
  2. PREDNISONE [Suspect]
     Indication: PROPHYLAXIS AGAINST TRANSPLANT REJECTION
     Dosage: 0.3 MG/KG; QD
  3. MYCOPHENOLATE MOFETIL [Suspect]
     Indication: IMMUNOSUPPRESSANT DRUG THERAPY
  4. TACROLIMUS [Suspect]
     Indication: IMMUNOSUPPRESSANT DRUG THERAPY
  5. BASILIXIMAB (BASILIXIMAB) [Suspect]
     Indication: IMMUNOSUPPRESSANT DRUG THERAPY
  6. FLUDARABINE PHOSPHATE [Suspect]
     Indication: IMMUNOSUPPRESSANT DRUG THERAPY
     Dosage: 5 MG/M**2
  7. TREOSULFAN (TREOSULFAN) [Suspect]
     Indication: IMMUNOSUPPRESSANT DRUG THERAPY
     Dosage: 14 BQ
  8. CYCLOPHOSPHAMIDE [Suspect]
     Indication: IMMUNOSUPPRESSANT DRUG THERAPY
     Dosage: 50 MG/KG
  9. ANTI-THYMOCYTE GLOBULIN NOS [Concomitant]

REACTIONS (26)
  - ANAPHYLACTIC SHOCK [None]
  - BILE DUCT STENOSIS [None]
  - BILIARY ISCHAEMIA [None]
  - BLOOD BILIRUBIN INCREASED [None]
  - CHOLESTASIS [None]
  - DISEASE RECURRENCE [None]
  - EAR INFECTION BACTERIAL [None]
  - ENDOSCOPIC RETROGRADE CHOLANGIOPANCREATOGRAPHY ABNORMAL [None]
  - GAMMA-GLUTAMYLTRANSFERASE INCREASED [None]
  - GASTROENTERITIS VIRAL [None]
  - GASTROINTESTINAL INFECTION [None]
  - HEPATIC ENZYME INCREASED [None]
  - HERPES ZOSTER [None]
  - HYPERTENSION [None]
  - LYMPHOPENIA [None]
  - MULTI-ORGAN FAILURE [None]
  - OPTIC NEURITIS [None]
  - PORPHYRIA NON-ACUTE [None]
  - RENAL FAILURE [None]
  - RESPIRATORY FAILURE [None]
  - RETINITIS [None]
  - STAPHYLOCOCCAL SCALDED SKIN SYNDROME [None]
  - STAPHYLOCOCCAL SKIN INFECTION [None]
  - THERAPEUTIC AGENT TOXICITY [None]
  - VANISHING BILE DUCT SYNDROME [None]
  - VARICELLA VIRUS TEST POSITIVE [None]
